FAERS Safety Report 19003977 (Version 1)
Quarter: 2021Q1

REPORT INFORMATION
  Report Type: Spontaneous
  Country: US (occurrence: US)
  Receive Date: 20210312
  Receipt Date: 20210312
  Transmission Date: 20210420
  Serious: No
  Sender: FDA-Public Use
  Company Number: US-SMITH AND NEPHEW, INC-2020SMT00055

PATIENT
  Age: 76 Year
  Sex: Male
  Weight: 95.24 kg

DRUGS (4)
  1. COLLAGENASE SANTYL [Suspect]
     Active Substance: COLLAGENASE CLOSTRIDIUM HISTOLYTICUM
     Indication: SKIN NEOPLASM EXCISION
     Dosage: ^GOOD AND THICK^ 2 TIMES A DAY
     Route: 061
     Dates: start: 2020
  2. COLLAGENASE SANTYL [Suspect]
     Active Substance: COLLAGENASE CLOSTRIDIUM HISTOLYTICUM
     Indication: WOUND
     Dosage: ^GOOD AND THICK^, 1X/DAY
     Route: 061
     Dates: start: 20200624, end: 2020
  3. IBUPROFEN. [Concomitant]
     Active Substance: IBUPROFEN
  4. UNSPECIFIED PAIN KILLER [Concomitant]

REACTIONS (3)
  - Application site pain [Not Recovered/Not Resolved]
  - Off label use [Not Recovered/Not Resolved]
  - Middle insomnia [Not Recovered/Not Resolved]

NARRATIVE: CASE EVENT DATE: 2020
